FAERS Safety Report 9940049 (Version 1)
Quarter: 2014Q1

REPORT INFORMATION
  Report Type: Report from Study
  Country: US (occurrence: US)
  Receive Date: 20140303
  Receipt Date: 20140303
  Transmission Date: 20141002
  Serious: No
  Sender: FDA-Public Use
  Company Number: US-ABBVIE-13P-163-1035247-00

PATIENT
  Age: 36 Year
  Sex: Male
  Weight: 78.54 kg

DRUGS (3)
  1. HUMIRA PEN [Suspect]
     Indication: CROHN^S DISEASE
     Dosage: LOADING DOSE
     Dates: start: 201010, end: 201010
  2. HUMIRA PEN [Suspect]
  3. METHOTREXATE [Concomitant]
     Indication: CROHN^S DISEASE

REACTIONS (4)
  - Drug ineffective [Not Recovered/Not Resolved]
  - Rectal haemorrhage [Not Recovered/Not Resolved]
  - Crohn^s disease [Not Recovered/Not Resolved]
  - Rectal ulcer [Unknown]
